FAERS Safety Report 25189571 (Version 2)
Quarter: 2025Q2

REPORT INFORMATION
  Report Type: Report from Study
  Country: FR (occurrence: FR)
  Receive Date: 20250411
  Receipt Date: 20250519
  Transmission Date: 20250716
  Serious: Yes (Other)
  Sender: KYOWA
  Company Number: FR-KYOWAKIRIN-2025KK006294

PATIENT

DRUGS (29)
  1. MOGAMULIZUMAB [Suspect]
     Active Substance: MOGAMULIZUMAB
     Indication: Cutaneous T-cell lymphoma
     Route: 042
     Dates: start: 20240517
  2. MOGAMULIZUMAB [Suspect]
     Active Substance: MOGAMULIZUMAB
     Route: 042
     Dates: start: 20240305
  3. MOGAMULIZUMAB [Suspect]
     Active Substance: MOGAMULIZUMAB
     Route: 042
     Dates: start: 20240314
  4. MOGAMULIZUMAB [Suspect]
     Active Substance: MOGAMULIZUMAB
     Route: 042
     Dates: start: 20240322
  5. MOGAMULIZUMAB [Suspect]
     Active Substance: MOGAMULIZUMAB
     Route: 042
     Dates: start: 20240328
  6. MOGAMULIZUMAB [Suspect]
     Active Substance: MOGAMULIZUMAB
     Route: 042
     Dates: start: 20240403
  7. MOGAMULIZUMAB [Suspect]
     Active Substance: MOGAMULIZUMAB
     Route: 042
     Dates: start: 20240417
  8. MOGAMULIZUMAB [Suspect]
     Active Substance: MOGAMULIZUMAB
     Route: 042
     Dates: start: 20240502
  9. MOGAMULIZUMAB [Suspect]
     Active Substance: MOGAMULIZUMAB
     Route: 042
     Dates: start: 20240531
  10. MOGAMULIZUMAB [Suspect]
     Active Substance: MOGAMULIZUMAB
     Route: 042
     Dates: start: 20240628
  11. MOGAMULIZUMAB [Suspect]
     Active Substance: MOGAMULIZUMAB
     Route: 042
     Dates: start: 20240711
  12. MOGAMULIZUMAB [Suspect]
     Active Substance: MOGAMULIZUMAB
     Route: 042
     Dates: start: 20240726
  13. MOGAMULIZUMAB [Suspect]
     Active Substance: MOGAMULIZUMAB
     Route: 042
     Dates: start: 20240809
  14. MOGAMULIZUMAB [Suspect]
     Active Substance: MOGAMULIZUMAB
     Route: 042
     Dates: start: 20240823
  15. MOGAMULIZUMAB [Suspect]
     Active Substance: MOGAMULIZUMAB
     Route: 042
     Dates: start: 20240906
  16. MOGAMULIZUMAB [Suspect]
     Active Substance: MOGAMULIZUMAB
     Route: 042
     Dates: start: 20240919
  17. MOGAMULIZUMAB [Suspect]
     Active Substance: MOGAMULIZUMAB
     Route: 042
     Dates: start: 20241004
  18. MOGAMULIZUMAB [Suspect]
     Active Substance: MOGAMULIZUMAB
     Route: 042
     Dates: start: 20241018
  19. MOGAMULIZUMAB [Suspect]
     Active Substance: MOGAMULIZUMAB
     Route: 042
     Dates: start: 20241030
  20. MOGAMULIZUMAB [Suspect]
     Active Substance: MOGAMULIZUMAB
     Route: 042
     Dates: start: 20241115
  21. MOGAMULIZUMAB [Suspect]
     Active Substance: MOGAMULIZUMAB
     Route: 042
     Dates: start: 20241129
  22. MOGAMULIZUMAB [Suspect]
     Active Substance: MOGAMULIZUMAB
     Route: 042
     Dates: start: 20241213
  23. MOGAMULIZUMAB [Suspect]
     Active Substance: MOGAMULIZUMAB
     Route: 042
     Dates: start: 20241224
  24. MOGAMULIZUMAB [Suspect]
     Active Substance: MOGAMULIZUMAB
     Route: 042
     Dates: start: 20250107
  25. MOGAMULIZUMAB [Suspect]
     Active Substance: MOGAMULIZUMAB
     Route: 042
     Dates: start: 20250121
  26. MOGAMULIZUMAB [Suspect]
     Active Substance: MOGAMULIZUMAB
     Route: 042
     Dates: start: 20250204
  27. MOGAMULIZUMAB [Suspect]
     Active Substance: MOGAMULIZUMAB
     Route: 042
     Dates: start: 20250218
  28. MOGAMULIZUMAB [Suspect]
     Active Substance: MOGAMULIZUMAB
     Route: 042
     Dates: start: 20250304
  29. MECHLORETHAMINE [Concomitant]
     Active Substance: MECHLORETHAMINE
     Indication: Product used for unknown indication
     Route: 065
     Dates: start: 20240711

REACTIONS (1)
  - Hepatic cytolysis [Recovered/Resolved with Sequelae]

NARRATIVE: CASE EVENT DATE: 20240529
